FAERS Safety Report 9120936 (Version 1)
Quarter: 2013Q1

REPORT INFORMATION
  Report Type: Spontaneous
  Country: US (occurrence: US)
  Receive Date: 20130226
  Receipt Date: 20130226
  Transmission Date: 20140127
  Serious: Yes (Life-Threatening, Other)
  Sender: FDA-Public Use
  Company Number: US-ASTRAZENECA-2013SE12413

PATIENT
  Sex: 0

DRUGS (1)
  1. ZESTRIL [Suspect]
     Route: 048

REACTIONS (2)
  - Swollen tongue [Unknown]
  - Pharyngeal oedema [Unknown]
